FAERS Safety Report 10006493 (Version 2)
Quarter: 2014Q1

REPORT INFORMATION
  Report Type: Spontaneous
  Country: DE (occurrence: DE)
  Receive Date: 20140313
  Receipt Date: 20140313
  Transmission Date: 20141002
  Serious: Yes (Other)
  Sender: FDA-Public Use
  Company Number: DE-009507513-1110USA04552

PATIENT
  Age: 71 Year
  Sex: Female
  Weight: 65 kg

DRUGS (2)
  1. TAFLOTAN [Suspect]
     Indication: GLAUCOMA
     Dosage: 1 DROP BOTH EYES ONCE DAILY
     Route: 047
  2. EUTHYROX [Concomitant]
     Dosage: 50 MICROGRAM, UNK
     Route: 048

REACTIONS (6)
  - Deafness [Recovered/Resolved]
  - Motor dysfunction [Recovered/Resolved]
  - Hypoaesthesia [Recovered/Resolved]
  - Mental impairment [Recovered/Resolved]
  - Muscle spasms [Recovered/Resolved]
  - Headache [Recovered/Resolved]
